FAERS Safety Report 4296939-0 (Version None)
Quarter: 2004Q1

REPORT INFORMATION
  Report Type: 
  Country: None (occurrence: None)
  Receive Date: 20040126
  Receipt Date: 20030827
  Transmission Date: 20041129
  Serious: No
  Sender: FDA-Public Use
  Company Number: USA030845644

PATIENT
  Age: 16 Year
  Sex: Female
  Weight: 89 kg

DRUGS (7)
  1. STRATTERA [Suspect]
     Indication: ATTENTION DEFICIT/HYPERACTIVITY DISORDER
     Dosage: 60 MG/DAY
     Dates: start: 20030804
  2. ALBUTEROL [Concomitant]
  3. CELEXA [Concomitant]
  4. MINOCYCLINE HCL [Concomitant]
  5. ORAL CONTRACEPTIVE NOS [Concomitant]
  6. DECONGESTINE TR [Concomitant]
  7. TYLENOL ALLERGY SINUS [Concomitant]

REACTIONS (3)
  - DISTURBANCE IN ATTENTION [None]
  - INSOMNIA [None]
  - PSYCHOMOTOR HYPERACTIVITY [None]
